FAERS Safety Report 7373993-0 (Version None)
Quarter: 2011Q1

REPORT INFORMATION
  Report Type: 
  Country: None (occurrence: None)
  Receive Date: 20110325
  Receipt Date: 20110323
  Transmission Date: 20110831
  Serious: No
  Sender: FDA-Public Use
  Company Number: US-PFIZER INC-2009187912

PATIENT
  Sex: Female

DRUGS (2)
  1. NEBIVOLOL HYDROCHLORIDE [Interacting]
     Dosage: 5 MG, 1X/DAY
     Route: 048
  2. ZOLOFT [Suspect]
     Route: 048

REACTIONS (2)
  - HEART RATE DECREASED [None]
  - DRUG INTERACTION [None]
